FAERS Safety Report 10760756 (Version 1)
Quarter: 2015Q1

REPORT INFORMATION
  Report Type: Spontaneous
  Country: CA (occurrence: None)
  Receive Date: 20150202
  Receipt Date: 20150202
  Transmission Date: 20150721
  Serious: Yes (Other)
  Sender: FDA-Public Use
  Company Number: 2015FE00182

PATIENT
  Age: 82 Year
  Sex: Male

DRUGS (1)
  1. DEGARELIX [Suspect]
     Active Substance: DEGARELIX
     Indication: PROSTATE CANCER
     Route: 058
     Dates: start: 20130416

REACTIONS (5)
  - Back pain [None]
  - Arthralgia [None]
  - Musculoskeletal chest pain [None]
  - Hypoaesthesia [None]
  - Peripheral swelling [None]

NARRATIVE: CASE EVENT DATE: 20141223
